FAERS Safety Report 4848959-2 (Version None)
Quarter: 2005Q4

REPORT INFORMATION
  Report Type: 
  Country: None (occurrence: None)
  Receive Date: 20051122
  Receipt Date: 20041019
  Transmission Date: 20060501
  Serious: Yes (Other)
  Sender: FDA-Public Use
  Company Number: 2004-10-0005

PATIENT
  Age: 78 Year
  Sex: Male

DRUGS (1)
  1. PACLITAXEL [Suspect]
     Indication: LUNG NEOPLASM MALIGNANT
     Dosage: 78MG Q6WEEKS, INTRAVENOUS
     Route: 042
     Dates: start: 20040726, end: 20040913

REACTIONS (1)
  - HYPERSENSITIVITY [None]
